FAERS Safety Report 10424847 (Version 1)
Quarter: 2014Q3

REPORT INFORMATION
  Report Type: Spontaneous
  Country: US (occurrence: None)
  Receive Date: 20140722
  Receipt Date: 20140722
  Transmission Date: 20150326
  Serious: No
  Sender: FDA-Public Use
  Company Number: 163-10004-14061326

PATIENT
  Age: 51 Year
  Sex: Female
  Weight: 120.2 kg

DRUGS (12)
  1. CYMBALTA [Concomitant]
     Active Substance: DULOXETINE HYDROCHLORIDE
  2. OTEZLA [Suspect]
     Active Substance: APREMILAST
     Indication: OSTEOARTHRITIS
     Route: 048
     Dates: start: 20140524
  3. PHENERGAN [Concomitant]
     Active Substance: PROMETHAZINE HYDROCHLORIDE
  4. FLONASE [Concomitant]
     Active Substance: FLUTICASONE PROPIONATE
  5. SEROQUEL [Concomitant]
     Active Substance: QUETIAPINE FUMARATE
  6. OXYCODONE [Concomitant]
     Active Substance: OXYCODONE
  7. OTEZLA [Suspect]
     Active Substance: APREMILAST
     Indication: PSORIATIC ARTHROPATHY
     Route: 048
     Dates: start: 20140524
  8. ZANTAC [Concomitant]
     Active Substance: RANITIDINE HYDROCHLORIDE
  9. OTEZLA [Suspect]
     Active Substance: APREMILAST
     Indication: FIBROMYALGIA
     Route: 048
     Dates: start: 20140524
  10. ALLEGRA D (ALLEGRA-D SLOW RELEASE) [Concomitant]
  11. LORAZEPAM. [Concomitant]
     Active Substance: LORAZEPAM
  12. OTEZLA [Suspect]
     Active Substance: APREMILAST
     Indication: RHEUMATOID ARTHRITIS
     Route: 048
     Dates: start: 20140524

REACTIONS (8)
  - Nasal disorder [None]
  - Nausea [None]
  - Weight decreased [None]
  - Vomiting [None]
  - Migraine [None]
  - Abdominal pain upper [None]
  - Decreased appetite [None]
  - Diarrhoea [None]

NARRATIVE: CASE EVENT DATE: 201405
